FAERS Safety Report 22023136 (Version 5)
Quarter: 2023Q2

REPORT INFORMATION
  Report Type: Report from Study
  Country: FR (occurrence: FR)
  Receive Date: 20230223
  Receipt Date: 20230410
  Transmission Date: 20230721
  Serious: Yes (Hospitalization)
  Sender: FDA-Public Use
  Company Number: FR-ABBVIE-4314321

PATIENT
  Age: 28 Year
  Sex: Male
  Weight: 61 kg

DRUGS (5)
  1. UPADACITINIB [Suspect]
     Active Substance: UPADACITINIB
     Indication: Axial spondyloarthritis
     Route: 048
     Dates: start: 20230106
  2. COSENTYX [Concomitant]
     Active Substance: SECUKINUMAB
     Indication: Axial spondyloarthritis
     Route: 058
     Dates: start: 202112, end: 202211
  3. COSENTYX [Concomitant]
     Active Substance: SECUKINUMAB
     Indication: Axial spondyloarthritis
     Route: 058
     Dates: start: 202211, end: 202301
  4. ARCOXIA [Concomitant]
     Active Substance: ETORICOXIB
     Indication: Axial spondyloarthritis
     Dosage: CONTINUOUS
     Route: 048
     Dates: start: 202211, end: 202301
  5. VOLTARENE [Concomitant]
     Indication: Axial spondyloarthritis
     Dosage: CONTINUOUS
     Route: 048
     Dates: start: 202210, end: 20230106

REACTIONS (3)
  - Arthralgia [Recovered/Resolved]
  - Dry skin [Recovered/Resolved]
  - Diarrhoea [Recovered/Resolved]

NARRATIVE: CASE EVENT DATE: 20230201
